FAERS Safety Report 6181224-2 (Version None)
Quarter: 2009Q2

REPORT INFORMATION
  Report Type: 
  Country: None (occurrence: None)
  Receive Date: 20090506
  Receipt Date: 20090501
  Transmission Date: 20091009
  Serious: Yes (Hospitalization)
  Sender: FDA-Public Use
  Company Number: US-BRISTOL-MYERS SQUIBB COMPANY-14603401

PATIENT
  Age: 4 Year
  Sex: Female
  Weight: 14 kg

DRUGS (4)
  1. DASATINIB [Suspect]
     Indication: ACUTE LYMPHOCYTIC LEUKAEMIA RECURRENT
     Dosage: FREQUENCY- Q12HR; STARTED 20MG BID; LATER REDUCED TO 10MG BID
     Route: 048
     Dates: start: 20081208
  2. DEXAMETHASONE 4MG TAB [Suspect]
     Route: 048
     Dates: start: 20081202, end: 20081216
  3. ONCASPAR [Concomitant]
     Dates: start: 20081203
  4. CYCLOSPORINE [Concomitant]
     Dates: end: 20081204

REACTIONS (2)
  - ENCEPHALOPATHY [None]
  - HYPERTENSION [None]
